FAERS Safety Report 7542598-0 (Version None)
Quarter: 2011Q2

REPORT INFORMATION
  Report Type: 
  Country: None (occurrence: None)
  Receive Date: 20110613
  Receipt Date: 20110606
  Transmission Date: 20111010
  Serious: Yes (Other)
  Sender: FDA-Public Use
  Company Number: AU-ROCHE-781093

PATIENT
  Sex: Male

DRUGS (4)
  1. FLUOROURACIL [Concomitant]
  2. LEUCOVORIN CALCIUM [Concomitant]
  3. AVASTIN [Suspect]
     Route: 065
  4. IRINOTECAN HYDROCHLORIDE [Concomitant]

REACTIONS (1)
  - PSYCHOTIC DISORDER [None]
